FAERS Safety Report 6085623-9 (Version None)
Quarter: 2009Q1

REPORT INFORMATION
  Report Type: 
  Country: None (occurrence: None)
  Receive Date: 20090220
  Receipt Date: 20090209
  Transmission Date: 20090719
  Serious: Yes (Other)
  Sender: FDA-Public Use
  Company Number: GB-AVENTIS-200911491GDDC

PATIENT

DRUGS (15)
  1. GLIBENCLAMIDE [Suspect]
     Route: 048
  2. METFORMIN [Suspect]
     Route: 048
  3. GLICLAZIDE [Suspect]
     Route: 048
  4. GLIPIZIDE [Suspect]
     Route: 048
  5. GLIBORNURIDE [Suspect]
     Route: 048
  6. GLIQUIDONE [Suspect]
     Route: 048
  7. TOLBUTAMIDE [Suspect]
     Route: 048
  8. CHLORPROPAMIDE [Suspect]
     Route: 048
  9. TOLAZAMIDE [Suspect]
     Route: 048
  10. PIOGLITAZONE [Suspect]
     Route: 048
  11. ROSIGLITAZONE [Suspect]
     Route: 048
  12. TROGLITAZONE [Suspect]
     Route: 048
  13. ACARBOSE [Suspect]
     Route: 048
  14. REPAGLINIDINE [Suspect]
     Route: 048
  15. NATEGLINIDE [Suspect]
     Route: 048

REACTIONS (3)
  - HYPEROSMOLAR STATE [None]
  - KETOACIDOSIS [None]
  - RESPIRATORY ACIDOSIS [None]
